FAERS Safety Report 25260229 (Version 1)
Quarter: 2025Q2

REPORT INFORMATION
  Report Type: Spontaneous
  Country: US (occurrence: None)
  Receive Date: 20250501
  Receipt Date: 20250501
  Transmission Date: 20250717
  Serious: Yes (unspecified)
  Sender: FDA-CTU
  Company Number: None

PATIENT
  Age: 74 Year
  Sex: Male

DRUGS (2)
  1. NITROFURANTOIN [Suspect]
     Active Substance: NITROFURANTOIN
     Indication: Urinary tract infection
     Dates: start: 20250424
  2. CEFPODOXIME PROXETIL [Suspect]
     Active Substance: CEFPODOXIME PROXETIL
     Dates: start: 20250420, end: 20250423

REACTIONS (1)
  - Angioedema [None]

NARRATIVE: CASE EVENT DATE: 20250420
